FAERS Safety Report 10399778 (Version 2)
Quarter: 2014Q3

REPORT INFORMATION
  Report Type: Spontaneous
  Country: US (occurrence: US)
  Receive Date: 20140821
  Receipt Date: 20140821
  Transmission Date: 20150326
  Serious: Yes (Hospitalization)
  Sender: FDA-Public Use
  Company Number: US-GLAXOSMITHKLINE-A0754096A

PATIENT
  Sex: Male
  Weight: 104.5 kg

DRUGS (13)
  1. AVANDIA [Suspect]
     Active Substance: ROSIGLITAZONE MALEATE
     Indication: DIABETES MELLITUS
     Dosage: 8MG PER DAY
     Route: 048
     Dates: start: 200202, end: 200706
  2. ALLOPURINOL. [Concomitant]
     Active Substance: ALLOPURINOL
  3. NEURONTIN [Concomitant]
     Active Substance: GABAPENTIN
  4. KDUR [Concomitant]
  5. GLUCOPHAGE [Concomitant]
     Active Substance: METFORMIN HYDROCHLORIDE
  6. LORTAB [Concomitant]
     Active Substance: ACETAMINOPHEN\HYDROCODONE BITARTRATE
  7. AMBIEN [Concomitant]
     Active Substance: ZOLPIDEM TARTRATE
  8. XANAX [Concomitant]
     Active Substance: ALPRAZOLAM
  9. ROSIGLITAZONE MALEATE. [Suspect]
     Active Substance: ROSIGLITAZONE MALEATE
     Indication: DIABETES MELLITUS
     Route: 048
     Dates: start: 200610
  10. FLEXERIL [Concomitant]
     Active Substance: CYCLOBENZAPRINE HYDROCHLORIDE
  11. WELLBUTRIN [Concomitant]
     Active Substance: BUPROPION HYDROCHLORIDE
  12. INSULIN [Concomitant]
     Active Substance: INSULIN NOS
  13. VASOTEC [Concomitant]
     Active Substance: ENALAPRIL MALEATE

REACTIONS (5)
  - Hypertension [Unknown]
  - Depression [Unknown]
  - Cardiac failure congestive [Unknown]
  - Congestive cardiomyopathy [Unknown]
  - Acute myocardial infarction [Unknown]
